FAERS Safety Report 9885434 (Version 4)
Quarter: 2014Q1

REPORT INFORMATION
  Report Type: Spontaneous
  Country: JP (occurrence: JP)
  Receive Date: 20140210
  Receipt Date: 20140311
  Transmission Date: 20141002
  Serious: Yes (Other)
  Sender: FDA-Public Use
  Company Number: JP-UCBSA-096787

PATIENT
  Age: 62 Year
  Sex: Female
  Weight: 54.3 kg

DRUGS (8)
  1. CIMZIA [Suspect]
     Indication: RHEUMATOID ARTHRITIS
     Dosage: FORM :SYRINGE
     Route: 058
     Dates: start: 20130712, end: 20131214
  2. BUFFERIN [Concomitant]
     Dosage: STRENGTH: 81 MG
     Route: 048
     Dates: start: 20120301
  3. MAINTATE [Concomitant]
     Route: 048
     Dates: start: 20120301
  4. NITOROL R [Concomitant]
     Route: 048
     Dates: start: 20040417
  5. RHEUMATREX [Concomitant]
     Route: 048
     Dates: start: 20040310
  6. BONALON [Concomitant]
     Dosage: STRENGTH: 35 MG
     Route: 048
     Dates: start: 20090614
  7. ONEALFA [Concomitant]
     Route: 048
     Dates: start: 20030130
  8. FOLIAMIN [Concomitant]
     Route: 048
     Dates: start: 20111019

REACTIONS (4)
  - Herpes zoster [Recovered/Resolved]
  - Injection site discolouration [Recovered/Resolved]
  - Injection site induration [Recovered/Resolved]
  - Rash [Not Recovered/Not Resolved]
